FAERS Safety Report 14601440 (Version 12)
Quarter: 2020Q4

REPORT INFORMATION
  Report Type: Other
  Country: DE (occurrence: DE)
  Receive Date: 20180305
  Receipt Date: 20201214
  Transmission Date: 20210113
  Serious: Yes (Hospitalization)
  Sender: FDA-Public Use
  Company Number: DE-ROCHE-1432942

PATIENT
  Age: 66 Year
  Sex: Female

DRUGS (16)
  1. TRANSTEC [Concomitant]
     Active Substance: BUPRENORPHINE
  2. ASPIRIN. [Concomitant]
     Active Substance: ASPIRIN
     Dosage: 1-0-0
  3. LODOTRA [Concomitant]
     Active Substance: PREDNISONE
  4. ROACTEMRA [Suspect]
     Active Substance: TOCILIZUMAB
     Indication: RHEUMATOID ARTHRITIS
     Route: 042
     Dates: start: 20110101, end: 20140401
  5. CORTISON [Concomitant]
     Active Substance: CORTISONE ACETATE
     Indication: RHEUMATOID ARTHRITIS
     Route: 065
  6. PALEXIA [Concomitant]
     Active Substance: TAPENTADOL HYDROCHLORIDE
  7. LYRICA [Concomitant]
     Active Substance: PREGABALIN
     Dosage: 1-0-1
  8. ROACTEMRA [Suspect]
     Active Substance: TOCILIZUMAB
     Indication: RHEUMATOID ARTHRITIS
     Route: 058
     Dates: start: 20140501, end: 20191217
  9. PALEXIA [Concomitant]
     Active Substance: TAPENTADOL HYDROCHLORIDE
     Dosage: 2-2-2
  10. PANTOZOLE [Concomitant]
     Active Substance: PANTOPRAZOLE SODIUM
     Dosage: 1-0-0
  11. L-THYROXIN [Concomitant]
     Active Substance: LEVOTHYROXINE SODIUM
     Dosage: 1-0-0
  12. LODOTRA [Concomitant]
     Active Substance: PREDNISONE
  13. ROACTEMRA [Suspect]
     Active Substance: TOCILIZUMAB
     Indication: GIANT CELL ARTERITIS
  14. VIGANTOLETTEN [Concomitant]
     Active Substance: CHOLECALCIFEROL
  15. RAMIPRIL. [Concomitant]
     Active Substance: RAMIPRIL
     Dosage: 1-0-0
  16. LODOTRA [Concomitant]
     Active Substance: PREDNISONE

REACTIONS (9)
  - Arthritis [Recovered/Resolved]
  - Pneumonia [Recovering/Resolving]
  - Pain in extremity [Recovered/Resolved]
  - Hypertensive crisis [Recovered/Resolved]
  - Joint swelling [Recovering/Resolving]
  - Arthralgia [Recovering/Resolving]
  - Abdominal pain [Unknown]
  - Peripheral swelling [Not Recovered/Not Resolved]
  - Headache [Recovered/Resolved]

NARRATIVE: CASE EVENT DATE: 20141215
